FAERS Safety Report 5858703-8 (Version None)
Quarter: 2008Q3

REPORT INFORMATION
  Report Type: 
  Country: None (occurrence: None)
  Receive Date: 20080826
  Receipt Date: 20080813
  Transmission Date: 20090109
  Serious: No
  Sender: FDA-Public Use
  Company Number: US-BOEHRINGER INGELHEIM GMBH, GERMANY-2008-BP-12890BP

PATIENT
  Sex: Female

DRUGS (3)
  1. ZANTAC 75 [Suspect]
     Indication: OESOPHAGITIS
     Route: 048
     Dates: start: 20080501, end: 20080501
  2. ZANTAC 75 [Suspect]
     Route: 048
     Dates: start: 20080610
  3. PANTOPRAZOLE [Suspect]
     Indication: OESOPHAGITIS
     Route: 048
     Dates: start: 20080605, end: 20080605

REACTIONS (3)
  - DRUG INEFFECTIVE [None]
  - FAECAL INCONTINENCE [None]
  - OESOPHAGEAL PAIN [None]
